FAERS Safety Report 9985546 (Version 2)
Quarter: 2014Q2

REPORT INFORMATION
  Report Type: Spontaneous
  Country: US (occurrence: US)
  Receive Date: 20140307
  Receipt Date: 20140402
  Transmission Date: 20141212
  Serious: Yes (Other)
  Sender: FDA-Public Use
  Company Number: US-ASTRAZENECA-2014SE15112

PATIENT
  Age: 22732 Day
  Sex: Female
  Weight: 97.5 kg

DRUGS (18)
  1. SYMBICORT [Suspect]
     Indication: CHRONIC OBSTRUCTIVE PULMONARY DISEASE
     Dosage: 160/4.5, 2 PUFF 2 TIMES A DAY
     Route: 055
     Dates: start: 20131024, end: 20131230
  2. SYMBICORT [Suspect]
     Indication: CHRONIC OBSTRUCTIVE PULMONARY DISEASE
     Dosage: 160/4.5, 1 PUFF 2 TIMES A DAY
     Route: 055
     Dates: start: 201312, end: 20140108
  3. OMEPRAZOLE [Suspect]
     Indication: GASTROOESOPHAGEAL REFLUX DISEASE
     Route: 048
     Dates: start: 1998
  4. DEPAKOTE [Suspect]
     Route: 048
     Dates: start: 20140121
  5. COUMADIN [Concomitant]
     Indication: ANTIPHOSPHOLIPID SYNDROME
     Route: 048
     Dates: start: 2002
  6. CELEBREX [Concomitant]
     Indication: ARTHRITIS
     Route: 048
     Dates: start: 2002
  7. LEVOTHROXINE [Concomitant]
     Indication: HYPOTHYROIDISM
     Route: 048
     Dates: start: 19981001
  8. CLARITIN [Concomitant]
     Indication: MULTIPLE ALLERGIES
     Route: 048
     Dates: start: 1998
  9. PAXIL [Concomitant]
     Indication: PANIC ATTACK
     Route: 048
     Dates: start: 1998
  10. LOSARTAN [Concomitant]
     Indication: HYPERTENSION
     Route: 048
     Dates: start: 1998
  11. VERAPAMIL ER [Concomitant]
     Indication: HYPERTENSION
     Route: 048
     Dates: start: 1999
  12. FLONASE [Concomitant]
     Indication: MULTIPLE ALLERGIES
     Dosage: PRN
     Route: 045
     Dates: start: 2001
  13. VENTOLIN [Concomitant]
     Indication: PROPHYLAXIS
     Dosage: PRN
     Route: 055
  14. TYLENOL WITH CODEINE [Concomitant]
     Indication: COUGH
     Dosage: PRN
     Route: 048
  15. TYLENOL WITH CODEINE [Concomitant]
     Indication: PAIN
     Dosage: PRN
     Route: 048
  16. AMBIEN [Concomitant]
     Indication: INSOMNIA
     Route: 048
     Dates: start: 2006
  17. XANAX [Concomitant]
     Indication: MENTAL DISORDER
     Route: 048
     Dates: start: 20140120
  18. BREOELLIPTA [Concomitant]
     Indication: CHRONIC OBSTRUCTIVE PULMONARY DISEASE
     Route: 055
     Dates: start: 20140108

REACTIONS (9)
  - Mania [Recovered/Resolved]
  - Aphagia [Unknown]
  - Flight of ideas [Unknown]
  - Delusion of grandeur [Unknown]
  - Logorrhoea [Unknown]
  - Adverse event [Unknown]
  - Insomnia [Unknown]
  - Euphoric mood [Unknown]
  - Off label use [Unknown]
